FAERS Safety Report 17756251 (Version 3)
Quarter: 2020Q3

REPORT INFORMATION
  Report Type: Report from Study
  Country: US (occurrence: US)
  Receive Date: 20200507
  Receipt Date: 20200811
  Transmission Date: 20201102
  Serious: No
  Sender: FDA-Public Use
  Company Number: US-AGIOS-2005US01890

PATIENT

DRUGS (1)
  1. TIBSOVO [Suspect]
     Active Substance: IVOSIDENIB
     Indication: ACUTE MYELOID LEUKAEMIA
     Dosage: 250 MILLIGRAM, 2 TABLETS (500 MG), QD
     Route: 048
     Dates: start: 20200421

REACTIONS (8)
  - Muscle strain [Not Recovered/Not Resolved]
  - Pain in extremity [Unknown]
  - Acne [Unknown]
  - Cold sweat [Unknown]
  - Abdominal distension [Unknown]
  - Weight increased [Unknown]
  - Peripheral swelling [Unknown]
  - Flank pain [Unknown]
